FAERS Safety Report 12662808 (Version 1)
Quarter: 2016Q3

REPORT INFORMATION
  Report Type: Spontaneous
  Country: US (occurrence: US)
  Receive Date: 20160818
  Receipt Date: 20160818
  Transmission Date: 20161109
  Serious: No
  Sender: FDA-Public Use
  Company Number: US-BEH-2016072379

PATIENT
  Sex: Female
  Weight: 65.76 kg

DRUGS (17)
  1. HIZENTRA [Suspect]
     Active Substance: HUMAN IMMUNOGLOBULIN G
     Dosage: 12 G, QW
     Route: 058
     Dates: start: 20150113
  2. EPIPEN [Concomitant]
     Active Substance: EPINEPHRINE
  3. QNASL [Concomitant]
     Active Substance: BECLOMETHASONE DIPROPIONATE
  4. CELEBREX [Concomitant]
     Active Substance: CELECOXIB
  5. OCEAN SALINE NASAL SPRAY [Concomitant]
     Active Substance: SODIUM CHLORIDE
  6. HIZENTRA [Suspect]
     Active Substance: HUMAN IMMUNOGLOBULIN G
     Indication: IMMUNODEFICIENCY COMMON VARIABLE
     Route: 058
  7. HIZENTRA [Suspect]
     Active Substance: HUMAN IMMUNOGLOBULIN G
     Dosage: UNK
     Route: 058
  8. VITAMIN D                          /00107901/ [Concomitant]
     Active Substance: ERGOCALCIFEROL
  9. LIDOCAINE. [Concomitant]
     Active Substance: LIDOCAINE
  10. MUPIROCIN. [Concomitant]
     Active Substance: MUPIROCIN
  11. VICTOZA [Concomitant]
     Active Substance: LIRAGLUTIDE
  12. QVAR [Concomitant]
     Active Substance: BECLOMETHASONE DIPROPIONATE
  13. LOSARTAN. [Concomitant]
     Active Substance: LOSARTAN
  14. ASPIRIN. [Concomitant]
     Active Substance: ASPIRIN
  15. FENOFIBRATE. [Concomitant]
     Active Substance: FENOFIBRATE
  16. METFORMIN [Concomitant]
     Active Substance: METFORMIN HYDROCHLORIDE
  17. OMEPRAZOLE. [Concomitant]
     Active Substance: OMEPRAZOLE

REACTIONS (1)
  - Unevaluable event [Unknown]
